FAERS Safety Report 6409929-6 (Version None)
Quarter: 2009Q4

REPORT INFORMATION
  Report Type: 
  Country: None (occurrence: None)
  Receive Date: 20091022
  Receipt Date: 20091014
  Transmission Date: 20100525
  Serious: Yes (Life-Threatening, Hospitalization, Other)
  Sender: FDA-Public Use
  Company Number: JP-ABBOTT-09P-087-0561809-00

PATIENT
  Sex: Female
  Weight: 66.1 kg

DRUGS (9)
  1. HUMIRA [Suspect]
     Indication: RHEUMATOID ARTHRITIS
     Route: 058
     Dates: start: 20081029, end: 20081127
  2. BETAMETHASONE/D-CHLORPHENIRAMINE MALEATE [Concomitant]
     Indication: RHEUMATOID ARTHRITIS
     Dosage: 2T
     Route: 048
     Dates: end: 20090427
  3. ALFACALCIDOL [Concomitant]
     Indication: DRUG USE FOR UNKNOWN INDICATION
  4. ISONIAZID [Concomitant]
     Indication: ANTIBIOTIC PROPHYLAXIS
     Dates: start: 20081008, end: 20090303
  5. PYRIDOXAL PHOSPHATE HYDRATE [Concomitant]
     Indication: DRUG USE FOR UNKNOWN INDICATION
     Dates: start: 20081008, end: 20090303
  6. LANSOPRAZOLE [Concomitant]
     Indication: DRUG USE FOR UNKNOWN INDICATION
  7. TEPRENONE [Concomitant]
     Indication: DRUG USE FOR UNKNOWN INDICATION
     Dates: end: 20090303
  8. MOSAPRIDE CITRATE HYDRATE [Concomitant]
     Indication: DRUG USE FOR UNKNOWN INDICATION
  9. SODIUM RISEDRONATE HYDRATE [Concomitant]
     Indication: DRUG USE FOR UNKNOWN INDICATION

REACTIONS (7)
  - ASTHENIA [None]
  - DEPRESSED LEVEL OF CONSCIOUSNESS [None]
  - FALL [None]
  - FRACTURED SACRUM [None]
  - HYPOXIA [None]
  - PUBIS FRACTURE [None]
  - PULMONARY EMBOLISM [None]
